FAERS Safety Report 16833780 (Version 1)
Quarter: 2019Q3

REPORT INFORMATION
  Report Type: Spontaneous
  Country: GB (occurrence: GB)
  Receive Date: 20190920
  Receipt Date: 20190920
  Transmission Date: 20191005
  Serious: Yes (Other)
  Sender: FDA-Public Use
  Company Number: GB-ASTRAZENECA-2019SF30448

PATIENT
  Age: 66 Year
  Sex: Female
  Weight: 67.6 kg

DRUGS (7)
  1. AMLODIPINE BESILATE [Concomitant]
     Active Substance: AMLODIPINE BESYLATE
     Dosage: 5.0MG UNKNOWN
  2. PARACETAMOL [Concomitant]
     Active Substance: ACETAMINOPHEN
  3. IBUPROFEN. [Concomitant]
     Active Substance: IBUPROFEN
  4. WOCKHARDT UK PREGABALIN [Concomitant]
  5. OMEPRAZOLE. [Suspect]
     Active Substance: OMEPRAZOLE
     Indication: ABDOMINAL PAIN UPPER
     Route: 048
     Dates: start: 20190702, end: 20190822
  6. SETTLERS/BEECHAMS ANTACID [Concomitant]
  7. QUININE SULFATE. [Concomitant]
     Active Substance: QUININE SULFATE

REACTIONS (2)
  - Somnolence [Recovered/Resolved]
  - Disturbance in attention [Recovered/Resolved]

NARRATIVE: CASE EVENT DATE: 20190718
